FAERS Safety Report 19651467 (Version 1)
Quarter: 2021Q3

REPORT INFORMATION
  Report Type: Spontaneous
  Country: US (occurrence: US)
  Receive Date: 20210803
  Receipt Date: 20210803
  Transmission Date: 20211014
  Serious: Yes (Disabling)
  Sender: FDA-Public Use
  Company Number: None

PATIENT
  Age: 87 Year
  Sex: Male
  Weight: 73 kg

DRUGS (1)
  1. APIXABAN [Suspect]
     Active Substance: APIXABAN
     Indication: ATRIAL FIBRILLATION
     Route: 048
     Dates: start: 20190507, end: 20210608

REACTIONS (4)
  - Eyelid ptosis [None]
  - Cerebral haematoma [None]
  - Microvascular cranial nerve palsy [None]
  - Subarachnoid haemorrhage [None]

NARRATIVE: CASE EVENT DATE: 20210608
